FAERS Safety Report 6422267-0 (Version None)
Quarter: 2009Q4

REPORT INFORMATION
  Report Type: 
  Country: None (occurrence: None)
  Receive Date: 20091030
  Receipt Date: 20091020
  Transmission Date: 20100525
  Serious: Yes (Other)
  Sender: FDA-Public Use
  Company Number: US-JNJCH-2009027806

PATIENT

DRUGS (1)
  1. BENADRYL ALLERGY KAPGELS [Suspect]
     Indication: DRUG USE FOR UNKNOWN INDICATION
     Dosage: TEXT:UNSPECIFIED
     Route: 048

REACTIONS (5)
  - ALTERED STATE OF CONSCIOUSNESS [None]
  - DAYDREAMING [None]
  - DISTURBANCE IN ATTENTION [None]
  - FATIGUE [None]
  - MOVEMENT DISORDER [None]
